FAERS Safety Report 10920863 (Version 1)
Quarter: 2015Q1

REPORT INFORMATION
  Report Type: Spontaneous
  Country: US (occurrence: None)
  Receive Date: 20150312
  Receipt Date: 20150312
  Transmission Date: 20150721
  Serious: No
  Sender: FDA-Public Use
  Company Number: None

PATIENT
  Age: 52 Year
  Sex: Male

DRUGS (15)
  1. KLOR-CON [Concomitant]
     Active Substance: POTASSIUM CHLORIDE
  2. AMPYRA [Suspect]
     Active Substance: DALFAMPRIDINE
     Indication: MULTIPLE SCLEROSIS
     Route: 048
     Dates: start: 201307
  3. METOPROLOL [Concomitant]
     Active Substance: METOPROLOL
  4. NITROSTAT [Concomitant]
     Active Substance: NITROGLYCERIN
  5. OMEPRAZOLE. [Concomitant]
     Active Substance: OMEPRAZOLE
  6. ASPIRIN. [Concomitant]
     Active Substance: ASPIRIN
  7. WARFARIN [Concomitant]
     Active Substance: WARFARIN
  8. METOCLOPRAMIDE. [Concomitant]
     Active Substance: METOCLOPRAMIDE
  9. AMPYRA [Concomitant]
     Active Substance: DALFAMPRIDINE
  10. HYDROCODONE/APAP [Concomitant]
     Active Substance: ACETAMINOPHEN\HYDROCODONE
  11. AMILODIPINE [Concomitant]
  12. RIFAMPIN. [Concomitant]
     Active Substance: RIFAMPIN
  13. RITUXAN [Concomitant]
     Active Substance: RITUXIMAB
  14. ISONIAZID. [Concomitant]
     Active Substance: ISONIAZID
  15. MODAFINIL. [Concomitant]
     Active Substance: MODAFINIL

REACTIONS (6)
  - Hypercalcaemia [None]
  - Pancreatitis [None]
  - Mental status changes [None]
  - Splenic vein thrombosis [None]
  - Leukocytosis [None]
  - Pancreatic pseudocyst [None]

NARRATIVE: CASE EVENT DATE: 20140518
